FAERS Safety Report 7474354-6 (Version None)
Quarter: 2011Q2

REPORT INFORMATION
  Report Type: 
  Country: None (occurrence: None)
  Receive Date: 20110511
  Receipt Date: 20101018
  Transmission Date: 20111010
  Serious: No
  Sender: FDA-Public Use
  Company Number: US-AMGEN-TCS432482

PATIENT
  Age: 50 Year
  Sex: Female
  Weight: 79.909 kg

DRUGS (7)
  1. PLAQUENIL [Concomitant]
     Indication: RHEUMATOID ARTHRITIS
     Dosage: 200 MG, QD
     Route: 048
  2. FOLIC ACID [Concomitant]
     Indication: RHEUMATOID ARTHRITIS
     Dosage: 1 MG, QD
     Route: 048
  3. METHOTREXATE [Concomitant]
     Indication: RHEUMATOID ARTHRITIS
     Dosage: 2.5 MG, QWK
     Route: 048
  4. CELEBREX [Concomitant]
     Indication: OSTEOARTHRITIS
     Dosage: 200 MG, BID
     Route: 048
  5. ENBREL [Suspect]
     Indication: RHEUMATOID ARTHRITIS
     Dosage: 50 MG, QWK
     Route: 058
     Dates: start: 20070101
  6. ENBREL [Suspect]
     Indication: PSORIASIS
  7. MELPHALAN HYDROCHLORIDE [Concomitant]
     Indication: RHEUMATOID ARTHRITIS
     Dosage: 5 MG, UNK
     Route: 048

REACTIONS (16)
  - PAIN [None]
  - DISCOMFORT [None]
  - PSORIASIS [None]
  - UPPER RESPIRATORY TRACT INFECTION [None]
  - INJECTION SITE WARMTH [None]
  - PARAESTHESIA [None]
  - SWELLING [None]
  - GAIT DISTURBANCE [None]
  - GASTRIC DISORDER [None]
  - INJECTION SITE ERYTHEMA [None]
  - RHEUMATOID ARTHRITIS [None]
  - FEELING HOT [None]
  - PRURITUS GENERALISED [None]
  - INJECTION SITE PAIN [None]
  - INJECTION SITE PRURITUS [None]
  - PAIN IN EXTREMITY [None]
